FAERS Safety Report 16480059 (Version 3)
Quarter: 2019Q3

REPORT INFORMATION
  Report Type: Spontaneous
  Country: US (occurrence: US)
  Receive Date: 20190626
  Receipt Date: 20190827
  Transmission Date: 20191004
  Serious: Yes (Other)
  Sender: FDA-Public Use
  Company Number: US-BAYER-2019-121858

PATIENT
  Age: 31 Year
  Sex: Female
  Weight: 92.06 kg

DRUGS (2)
  1. MIRENA [Suspect]
     Active Substance: LEVONORGESTREL
     Indication: CONTRACEPTION
  2. MIRENA [Suspect]
     Active Substance: LEVONORGESTREL
     Indication: CONTRACEPTION
     Dosage: 20 MCG/24HR, CONT
     Route: 015
     Dates: start: 20190529, end: 20190611

REACTIONS (1)
  - Embedded device [Recovered/Resolved]

NARRATIVE: CASE EVENT DATE: 20190611
